FAERS Safety Report 18538357 (Version 1)
Quarter: 2020Q4

REPORT INFORMATION
  Report Type: Other
  Country: US (occurrence: US)
  Receive Date: 20201124
  Receipt Date: 20201124
  Transmission Date: 20210114
  Serious: Yes (Hospitalization)
  Sender: FDA-Public Use
  Company Number: US-INTERCEPT-PM2020002314

PATIENT
  Age: 35 Year
  Sex: Female

DRUGS (11)
  1. URSODIOL. [Concomitant]
     Active Substance: URSODIOL
  2. IRON [Concomitant]
     Active Substance: IRON
  3. OCALIVA [Suspect]
     Active Substance: OBETICHOLIC ACID
     Indication: PRIMARY BILIARY CHOLANGITIS
     Dosage: 5 MG, QD
     Route: 048
     Dates: start: 20171205
  4. BENZTROPINE                        /00012901/ [Concomitant]
     Active Substance: BENZTROPINE
  5. HALOPERIDOL. [Concomitant]
     Active Substance: HALOPERIDOL
  6. OCALIVA [Suspect]
     Active Substance: OBETICHOLIC ACID
     Dosage: 10 MG, QD
     Route: 048
  7. LEVOTHYROXINE. [Concomitant]
     Active Substance: LEVOTHYROXINE
  8. TENOFOVIR [Concomitant]
     Active Substance: TENOFOVIR
  9. CALCIUM [Concomitant]
     Active Substance: CALCIUM
  10. FEROSUL [Concomitant]
     Active Substance: FERROUS SULFATE
  11. FLUOXETINE [Concomitant]
     Active Substance: FLUOXETINE HYDROCHLORIDE

REACTIONS (1)
  - Depression [Unknown]

NARRATIVE: CASE EVENT DATE: 20201112
